FAERS Safety Report 21885939 (Version 1)
Quarter: 2023Q1

REPORT INFORMATION
  Report Type: Spontaneous
  Country: JP (occurrence: JP)
  Receive Date: 20230119
  Receipt Date: 20230119
  Transmission Date: 20230418
  Serious: Yes (Other)
  Sender: FDA-Public Use
  Company Number: JP-STERISCIENCE B.V.-2023-ST-000123

PATIENT
  Sex: Male
  Weight: 2.602 kg

DRUGS (8)
  1. MIDAZOLAM [Suspect]
     Active Substance: MIDAZOLAM
     Indication: Product used for unknown indication
     Dosage: THE PATIENT^S MOTHER DOSE WAS 2 MILLIGRAM
     Route: 064
  2. PREDNISOLONE [Suspect]
     Active Substance: PREDNISOLONE
     Indication: Product used for unknown indication
     Dosage: THE PATIENT^S MOTHER DOSE WAS 2.5 MILLIGRAM
     Route: 064
  3. SEVOFLURANE [Suspect]
     Active Substance: SEVOFLURANE
     Indication: Product used for unknown indication
     Dosage: THE PATIENT^S MOTHER CONCENTRATION WAS 1 %
     Route: 064
  4. REMIFENTANIL [Suspect]
     Active Substance: REMIFENTANIL
     Indication: Product used for unknown indication
     Dosage: THE PATIENT^S MOTHER DOSE WAS 0.1 MICROGRAM/KILOGRAM, QMINUTE
     Route: 064
  5. FENTANYL [Suspect]
     Active Substance: FENTANYL
     Indication: Product used for unknown indication
     Dosage: THE PATIENT^S MOTHER DOSE WAS (100 MICROGRAM, 4.5 ?G/KG), (150 MICROGRAM, 4.5 ?G/KG) AND (250 MICROG
     Route: 064
  6. ROCURONIUM [Suspect]
     Active Substance: ROCURONIUM BROMIDE
     Indication: Product used for unknown indication
     Dosage: THE PATIENT^S MOTHER DOSE WAS 50 MILLIGRAM
     Route: 064
  7. PROPOFOL [Suspect]
     Active Substance: PROPOFOL
     Indication: Product used for unknown indication
     Dosage: THE PATIENT^S MOTHER DOSE WAS 30 MILLIGRAM
     Route: 064
  8. PHENYLEPHRINE [Suspect]
     Active Substance: PHENYLEPHRINE HYDROCHLORIDE
     Indication: Product used for unknown indication
     Dosage: THE PATIENT^S MOTHER DOSE WAS 2000 MICROGRAM
     Route: 064

REACTIONS (2)
  - Foetal distress syndrome [None]
  - Foetal exposure during delivery [Unknown]
